FAERS Safety Report 6502872-3 (Version None)
Quarter: 2009Q4

REPORT INFORMATION
  Report Type: 
  Country: None (occurrence: None)
  Receive Date: 20091201
  Receipt Date: 20090721
  Transmission Date: 20100525
  Serious: Yes (Other)
  Sender: FDA-Public Use
  Company Number: 202727USA

PATIENT
  Age: 49 Year
  Sex: Female

DRUGS (1)
  1. RIBAVIRIN [Suspect]

REACTIONS (6)
  - LOCALISED OEDEMA [None]
  - PAIN [None]
  - PANCREATITIS [None]
  - PLATELET COUNT DECREASED [None]
  - RED BLOOD CELL COUNT DECREASED [None]
  - WHITE BLOOD CELL COUNT DECREASED [None]
